FAERS Safety Report 14641754 (Version 10)
Quarter: 2020Q3

REPORT INFORMATION
  Report Type: Report from Study
  Country: KR (occurrence: KR)
  Receive Date: 20180315
  Receipt Date: 20181224
  Transmission Date: 20201105
  Serious: Yes (Hospitalization, Other)
  Sender: FDA-Public Use
  Company Number: KR-JNJFOC-20180315304

PATIENT
  Age: 40 Year
  Sex: Male
  Weight: 60 kg

DRUGS (18)
  1. NIFUROXAZIDE [Concomitant]
     Active Substance: NIFUROXAZIDE
     Indication: SUPPLEMENTATION THERAPY
     Dosage: 200 ML, QD
     Route: 048
     Dates: start: 20180316
  2. IBRUTINIB [Suspect]
     Active Substance: IBRUTINIB
     Indication: COLORECTAL ADENOCARCINOMA
     Route: 048
     Dates: start: 20180326, end: 20180331
  3. ULTRACET [Concomitant]
     Active Substance: ACETAMINOPHEN\TRAMADOL HYDROCHLORIDE
     Indication: BACK PAIN
     Dosage: 37.5/325 MG, TID 3827.75 MG
     Route: 048
     Dates: start: 20180202, end: 20180331
  4. BISACODYL. [Concomitant]
     Active Substance: BISACODYL
     Indication: CONSTIPATION
     Dosage: 10 MG, BID
     Route: 054
     Dates: start: 20180413, end: 20180414
  5. IBRUTINIB [Suspect]
     Active Substance: IBRUTINIB
     Indication: COLORECTAL ADENOCARCINOMA
     Dosage: 840 MG, QD
     Route: 048
     Dates: start: 20180302, end: 20180307
  6. ITOPRIDE [Concomitant]
     Active Substance: ITOPRIDE
     Indication: DYSPEPSIA
     Dosage: 901.341003 MG
     Route: 048
     Dates: start: 20180302, end: 20180329
  7. BISACODYL. [Concomitant]
     Active Substance: BISACODYL
     Indication: ABDOMINAL DISTENSION
     Dosage: 10 MG, BID
     Route: 054
     Dates: start: 20180413, end: 20180414
  8. PIMECROLIMUS. [Concomitant]
     Active Substance: PIMECROLIMUS
     Indication: RASH
     Dosage: 10 MG, BID
     Route: 061
     Dates: start: 20180309, end: 20180323
  9. BISACODYL. [Concomitant]
     Active Substance: BISACODYL
     Indication: CONSTIPATION
     Dosage: 10 MG, BID
     Route: 054
     Dates: start: 20180316, end: 20180325
  10. BISACODYL. [Concomitant]
     Active Substance: BISACODYL
     Indication: ABDOMINAL DISTENSION
     Dosage: 10 MG, BID
     Route: 054
     Dates: start: 20180316, end: 20180325
  11. CETUXIMAB. [Suspect]
     Active Substance: CETUXIMAB
     Indication: COLORECTAL ADENOCARCINOMA
     Dosage: 250 MG/M2, Q 3 WEEKSCUMULATIVE DOSE 103.448273 MG/M2
     Route: 042
     Dates: start: 20180302, end: 20180330
  12. DEXAMETHASONE. [Concomitant]
     Active Substance: DEXAMETHASONE
     Indication: STOMATITIS
     Dosage: 10 MG, BID
     Route: 048
     Dates: start: 20180316, end: 20180420
  13. MAGNESIUM OXIDE. [Concomitant]
     Active Substance: MAGNESIUM OXIDE
     Indication: CONSTIPATION
     Dosage: 500 MG, TID
     Route: 048
     Dates: start: 20180316, end: 20180326
  14. OXYCODONE [Concomitant]
     Active Substance: OXYCODONE
     Indication: BACK PAIN
     Dosage: 5 MG, PRN
     Route: 048
     Dates: start: 20180302
  15. MINOCYCLINE [Concomitant]
     Active Substance: MINOCYCLINE HYDROCHLORIDE
     Indication: RASH
     Dosage: 10 MG, BID
     Route: 048
     Dates: start: 20180309, end: 20180323
  16. MAGNESIUM OXIDE. [Concomitant]
     Active Substance: MAGNESIUM OXIDE
     Indication: ABDOMINAL DISTENSION
     Dosage: 500 MG, TID
     Route: 048
     Dates: start: 20180316, end: 20180326
  17. IBRUTINIB [Suspect]
     Active Substance: IBRUTINIB
     Indication: COLORECTAL ADENOCARCINOMA
     Dosage: 840 MG, QD
     Route: 048
     Dates: start: 20180308, end: 20180323
  18. OXYCODONE [Concomitant]
     Active Substance: OXYCODONE
     Indication: BACK PAIN
     Dosage: 10 MG, BID
     Route: 048
     Dates: start: 20180302, end: 20180422

REACTIONS (3)
  - Ileus [Recovered/Resolved]
  - Ascites [Recovered/Resolved]
  - Melaena [Recovered/Resolved]

NARRATIVE: CASE EVENT DATE: 20180307
